FAERS Safety Report 22642326 (Version 1)
Quarter: 2023Q2

REPORT INFORMATION
  Report Type: Spontaneous
  Country: CN (occurrence: CN)
  Receive Date: 20230626
  Receipt Date: 20230626
  Transmission Date: 20230722
  Serious: Yes (Other)
  Sender: FDA-Public Use
  Company Number: CN-009507513-2306CHN010515

PATIENT
  Age: 81 Year
  Sex: Male
  Weight: 48 kg

DRUGS (1)
  1. INVANZ [Suspect]
     Active Substance: ERTAPENEM SODIUM
     Indication: Urinary tract infection
     Dosage: 1 G, QD
     Route: 041
     Dates: start: 20230606, end: 20230611

REACTIONS (1)
  - Epilepsy [Recovering/Resolving]

NARRATIVE: CASE EVENT DATE: 20230611
